FAERS Safety Report 8020203-7 (Version None)
Quarter: 2012Q1

REPORT INFORMATION
  Report Type: 
  Country: None (occurrence: None)
  Receive Date: 20120103
  Receipt Date: 20111230
  Transmission Date: 20120608
  Serious: Yes (Hospitalization, Other)
  Sender: FDA-Public Use
  Company Number: US-ROCHE-1026522

PATIENT
  Sex: Male

DRUGS (1)
  1. ZELBORAF [Suspect]
     Indication: PRODUCT USED FOR UNKNOWN INDICATION

REACTIONS (9)
  - RASH [None]
  - GLAUCOMA [None]
  - NAUSEA [None]
  - SUNBURN [None]
  - SKIN EXFOLIATION [None]
  - SKIN DISCOLOURATION [None]
  - VOMITING [None]
  - EYE DISORDER [None]
  - EYE PAIN [None]
